FAERS Safety Report 5251707-8 (Version None)
Quarter: 2007Q1

REPORT INFORMATION
  Report Type: 
  Country: None (occurrence: None)
  Receive Date: 20070228
  Receipt Date: 20061018
  Transmission Date: 20070707
  Serious: No
  Sender: FDA-Public Use
  Company Number: US-GLAXOSMITHKLINE-A0624039A

PATIENT
  Sex: Male

DRUGS (10)
  1. LAMICTAL [Suspect]
     Indication: DRUG USE FOR UNKNOWN INDICATION
     Dosage: 25MG UNKNOWN
     Route: 048
     Dates: start: 20060501
  2. HYDROCHLOROTHIAZIDE [Concomitant]
  3. FUROSEMIDE [Concomitant]
  4. CIPRO [Concomitant]
  5. TEMAZEPAM [Concomitant]
  6. TRAZODONE HCL [Concomitant]
  7. CYMBALTA [Concomitant]
  8. MIRTAZAPINE [Concomitant]
  9. WELLBUTRIN XL [Concomitant]
  10. TRILEPTAL [Concomitant]

REACTIONS (1)
  - DRUG SCREEN POSITIVE [None]
